FAERS Safety Report 8080297-X (Version None)
Quarter: 2012Q1

REPORT INFORMATION
  Report Type: 
  Country: None (occurrence: None)
  Receive Date: 20120130
  Receipt Date: 20120124
  Transmission Date: 20120608
  Serious: Yes (Hospitalization)
  Sender: FDA-Public Use
  Company Number: NL-JNJFOC-20120110353

PATIENT
  Sex: Male
  Weight: 103 kg

DRUGS (12)
  1. VINCRISTINE [Suspect]
     Route: 042
  2. RITUXIMAB [Suspect]
     Route: 042
  3. PREDNISONE TAB [Suspect]
     Indication: DIFFUSE LARGE B-CELL LYMPHOMA
     Route: 048
  4. VINCRISTINE [Suspect]
     Indication: DIFFUSE LARGE B-CELL LYMPHOMA
     Route: 042
     Dates: start: 20111020
  5. RITUXIMAB [Suspect]
     Indication: DIFFUSE LARGE B-CELL LYMPHOMA
     Route: 042
     Dates: start: 20111020
  6. CYCLOPHOSPHAMIDE [Suspect]
     Route: 042
  7. DOXORUBICIN HCL [Suspect]
     Indication: DIFFUSE LARGE B-CELL LYMPHOMA
     Route: 042
     Dates: start: 20111020
  8. NEUPOGEN [Suspect]
     Indication: DIFFUSE LARGE B-CELL LYMPHOMA
     Route: 058
  9. CYCLOPHOSPHAMIDE [Suspect]
     Indication: DIFFUSE LARGE B-CELL LYMPHOMA
     Route: 042
     Dates: start: 20111020
  10. DOXORUBICIN HCL [Suspect]
     Route: 042
  11. NEUPOGEN [Suspect]
     Route: 058
     Dates: start: 20111020
  12. PREDNISONE TAB [Suspect]
     Route: 048
     Dates: start: 20111020

REACTIONS (1)
  - ANAL ABSCESS [None]
